FAERS Safety Report 7254248-1 (Version None)
Quarter: 2011Q1

REPORT INFORMATION
  Report Type: 
  Country: None (occurrence: None)
  Receive Date: 20110129
  Receipt Date: 20100111
  Transmission Date: 20110831
  Serious: No
  Sender: FDA-Public Use
  Company Number: US-ABBOTT-09P-163-0602640-00

PATIENT
  Sex: Female
  Weight: 68.1 kg

DRUGS (23)
  1. CALCIUM [Concomitant]
     Indication: OSTEOPOROSIS
  2. SYNTHROID [Concomitant]
     Indication: HYPOTHYROIDISM
  3. MIRAPEX [Concomitant]
     Indication: RESTLESS LEGS SYNDROME
  4. LOVAZA [Concomitant]
     Indication: MEDICAL DIET
  5. FISH OIL [Concomitant]
     Indication: PRODUCT USED FOR UNKNOWN INDICATION
  6. ASPIRIN [Concomitant]
     Indication: PRODUCT USED FOR UNKNOWN INDICATION
  7. PRIMIDONE [Concomitant]
     Indication: TREMOR
  8. FOSAMAX [Concomitant]
     Indication: OSTEOPOROSIS
  9. IRON [Concomitant]
  10. PRILOSEC [Concomitant]
     Indication: ABDOMINAL PAIN UPPER
  11. ESTRADIOL [Concomitant]
     Indication: HORMONE REPLACEMENT THERAPY
  12. DEPOPROGESTERONE [Concomitant]
     Indication: HORMONE REPLACEMENT THERAPY
  13. CLONAZEPAM [Concomitant]
     Indication: SLEEP DISORDER THERAPY
  14. REMERON [Suspect]
     Indication: TREMOR
     Dates: end: 20091001
  15. IMURAN [Concomitant]
     Indication: IMMUNE SYSTEM DISORDER
  16. CALCIUM WITH MAGNESIUM [Concomitant]
     Indication: PRODUCT USED FOR UNKNOWN INDICATION
  17. FLUOXETINE [Concomitant]
     Indication: DEPRESSION
  18. HUMIRA [Suspect]
     Indication: COLITIS ULCERATIVE
     Dates: start: 20090701
  19. HUMIRA [Suspect]
     Indication: CROHN'S DISEASE
  20. VITAMIN E [Concomitant]
     Indication: VITAMIN SUPPLEMENTATION
  21. NORCO [Concomitant]
     Indication: PAIN IN EXTREMITY
  22. PROGESTERONE [Concomitant]
     Indication: HORMONE REPLACEMENT THERAPY
  23. NORCO [Concomitant]
     Indication: RESTLESS LEGS SYNDROME

REACTIONS (14)
  - HEAD DISCOMFORT [None]
  - BACK PAIN [None]
  - SWELLING FACE [None]
  - WEIGHT INCREASED [None]
  - SKIN DISCOLOURATION [None]
  - PIGMENTATION DISORDER [None]
  - DRUG INEFFECTIVE [None]
  - DIZZINESS [None]
  - OEDEMA PERIPHERAL [None]
  - ALOPECIA [None]
  - HAIR TEXTURE ABNORMAL [None]
  - HEADACHE [None]
  - TINNITUS [None]
  - RENAL PAIN [None]
